FAERS Safety Report 9499797 (Version 1)
Quarter: 2013Q1

REPORT INFORMATION
  Report Type: Spontaneous
  Country: US (occurrence: None)
  Receive Date: 20130107
  Receipt Date: 20130107
  Transmission Date: 20140127
  Serious: No
  Sender: FDA-Public Use
  Company Number: PHEH2012US018491

PATIENT
  Age: 40 Year
  Sex: Female

DRUGS (1)
  1. GILENYA (FTY) [Suspect]
     Route: 048
     Dates: start: 20120917

REACTIONS (4)
  - Influenza like illness [None]
  - Cough [None]
  - Chills [None]
  - Rhinorrhoea [None]
